FAERS Safety Report 24007653 (Version 1)
Quarter: 2024Q2

REPORT INFORMATION
  Report Type: Spontaneous
  Country: DE (occurrence: DE)
  Receive Date: 20240625
  Receipt Date: 20240625
  Transmission Date: 20240715
  Serious: Yes (Life-Threatening, Hospitalization, Other)
  Sender: FDA-Public Use
  Company Number: None

PATIENT
  Age: 31 Year
  Sex: Female

DRUGS (3)
  1. SPRAVATO [Suspect]
     Active Substance: ESKETAMINE
     Indication: Depression
     Dosage: 2X28 MG
     Dates: start: 20240412, end: 20240429
  2. SPRAVATO [Suspect]
     Active Substance: ESKETAMINE
     Dosage: 3X28 MG
     Dates: start: 20240510, end: 20240604
  3. VENLAFAXINE HYDROCHLORIDE [Concomitant]
     Active Substance: VENLAFAXINE HYDROCHLORIDE
     Indication: Depression
     Dosage: 1-0-0-0, 225 MG
     Route: 065
     Dates: start: 202403

REACTIONS (3)
  - Suicide attempt [Unknown]
  - Suicidal behaviour [Unknown]
  - Euphoric mood [Unknown]

NARRATIVE: CASE EVENT DATE: 20240523
